FAERS Safety Report 6998177-7 (Version None)
Quarter: 2010Q3

REPORT INFORMATION
  Report Type: 
  Country: None (occurrence: None)
  Receive Date: 20100920
  Receipt Date: 20090915
  Transmission Date: 20110219
  Serious: No
  Sender: FDA-Public Use
  Company Number: US-ASTRAZENECA-2009SE13653

PATIENT
  Age: 25 Year
  Sex: Female
  Weight: 99.8 kg

DRUGS (5)
  1. SEROQUEL [Suspect]
     Indication: SLEEP DISORDER
     Route: 048
  2. SEROQUEL [Suspect]
     Route: 048
  3. AMBIEN [Suspect]
  4. XANAX [Concomitant]
     Indication: ANXIETY
  5. NARDIL [Concomitant]
     Indication: DEPRESSION

REACTIONS (6)
  - BLOOD CHOLESTEROL INCREASED [None]
  - BLOOD GLUCOSE INCREASED [None]
  - BLOOD PRESSURE INCREASED [None]
  - DEPRESSION [None]
  - SLEEP-RELATED EATING DISORDER [None]
  - WEIGHT INCREASED [None]
